FAERS Safety Report 23519118 (Version 3)
Quarter: 2024Q2

REPORT INFORMATION
  Report Type: Spontaneous
  Country: US (occurrence: US)
  Receive Date: 20240213
  Receipt Date: 20240401
  Transmission Date: 20240716
  Serious: No
  Sender: FDA-Public Use
  Company Number: US-JNJFOC-20240151696

PATIENT
  Sex: Male

DRUGS (1)
  1. IMODIUM MULTI-SYMPTOM RELIEF [Suspect]
     Active Substance: DIMETHICONE\LOPERAMIDE HYDROCHLORIDE
     Indication: Product used for unknown indication
     Dosage: BROKE ABOUT 3 OF THEM IN HALF AND TOOK ONE OF THEM
     Route: 065

REACTIONS (5)
  - Wrong technique in product usage process [Unknown]
  - Product packaging difficult to open [Unknown]
  - Incorrect dose administered [Unknown]
  - Decreased appetite [Unknown]
  - Somnolence [Unknown]
